FAERS Safety Report 6836006-2 (Version None)
Quarter: 2010Q3

REPORT INFORMATION
  Report Type: 
  Country: None (occurrence: None)
  Receive Date: 20100713
  Receipt Date: 20100707
  Transmission Date: 20110219
  Serious: Yes (Hospitalization)
  Sender: FDA-Public Use
  Company Number: A0869593A

PATIENT
  Age: 48 Year
  Sex: Female

DRUGS (1)
  1. AVANDIA [Suspect]
     Dosage: 2MG PER DAY
     Dates: start: 20060901, end: 20090401

REACTIONS (2)
  - DEPRESSION [None]
  - TRANSIENT ISCHAEMIC ATTACK [None]
